FAERS Safety Report 8466202-2 (Version None)
Quarter: 2012Q2

REPORT INFORMATION
  Report Type: 
  Country: None (occurrence: None)
  Receive Date: 20120626
  Receipt Date: 20120618
  Transmission Date: 20120825
  Serious: Yes (Hospitalization)
  Sender: FDA-Public Use
  Company Number: CA-ELI_LILLY_AND_COMPANY-CA201206006016

PATIENT
  Age: 57 Year
  Sex: Female

DRUGS (3)
  1. FORTEO [Suspect]
     Indication: OSTEOPOROSIS
     Dosage: 20 UG, QD
     Route: 058
     Dates: start: 20101117
  2. CALCIUM [Concomitant]
  3. SYNTHROID [Concomitant]

REACTIONS (2)
  - THORACIC VERTEBRAL FRACTURE [None]
  - LUMBAR VERTEBRAL FRACTURE [None]
